FAERS Safety Report 22796286 (Version 2)
Quarter: 2023Q4

REPORT INFORMATION
  Report Type: Spontaneous
  Country: GB (occurrence: GB)
  Receive Date: 20230808
  Receipt Date: 20231227
  Transmission Date: 20240110
  Serious: Yes (Other)
  Sender: FDA-Public Use
  Company Number: GB-CELLTRION INC.-2023GB015182

PATIENT

DRUGS (2)
  1. INFLIXIMAB [Suspect]
     Active Substance: INFLIXIMAB
     Indication: Crohn^s disease
     Dosage: 120 MG, EVERY 2 WEEKS
     Route: 058
     Dates: start: 20230627
  2. INFLIXIMAB [Suspect]
     Active Substance: INFLIXIMAB
     Indication: Crohn^s disease
     Dosage: UNK, EVERY 6 WEEKS
     Route: 042

REACTIONS (3)
  - Crohn^s disease [Not Recovered/Not Resolved]
  - Arthralgia [Unknown]
  - Intentional product use issue [Unknown]
